FAERS Safety Report 11030919 (Version 1)
Quarter: 2015Q2

REPORT INFORMATION
  Report Type: Other
  Country: JP (occurrence: JP)
  Receive Date: 20150415
  Receipt Date: 20150415
  Transmission Date: 20150821
  Serious: Yes (Death, Other)
  Sender: FDA-Public Use
  Company Number: JP-ACTELION-A-CH2015-116289

PATIENT

DRUGS (1)
  1. VELETRI [Suspect]
     Active Substance: EPOPROSTENOL
     Indication: PERSISTENT FOETAL CIRCULATION
     Route: 042

REACTIONS (5)
  - Atelectasis [Unknown]
  - Pulmonary air leakage [Unknown]
  - Increased upper airway secretion [Unknown]
  - Pulmonary haemorrhage [Unknown]
  - Death [Fatal]
